FAERS Safety Report 6310302-X (Version None)
Quarter: 2009Q3

REPORT INFORMATION
  Report Type: 
  Country: None (occurrence: None)
  Receive Date: 20090814
  Receipt Date: 20090806
  Transmission Date: 20100115
  Serious: Yes (Hospitalization)
  Sender: FDA-Public Use
  Company Number: PHHY2009AT33029

PATIENT
  Sex: Female

DRUGS (4)
  1. DIOVAN HCT [Suspect]
     Indication: HYPERTENSION
     Dosage: 160/12.5 MG DAILY
     Route: 048
     Dates: start: 20060101
  2. GALVUS [Suspect]
     Dosage: 50 MG IN THE EVENING
     Route: 048
     Dates: start: 20090311
  3. EUCREAS [Suspect]
     Dosage: 50/850 MG IN THE MORNING
     Route: 048
     Dates: start: 20090311
  4. AMLODIPINE [Concomitant]
     Dosage: 5 MG DAILY
     Route: 048
     Dates: start: 20040101

REACTIONS (1)
  - FACIAL PARESIS [None]
